FAERS Safety Report 6082585-5 (Version None)
Quarter: 2009Q1

REPORT INFORMATION
  Report Type: 
  Country: None (occurrence: None)
  Receive Date: 20090218
  Receipt Date: 20090206
  Transmission Date: 20090719
  Serious: Yes (Hospitalization)
  Sender: FDA-Public Use
  Company Number: JP-AVENTIS-200911388GDDC

PATIENT
  Age: 31 Year
  Sex: Female

DRUGS (10)
  1. RIFADIN [Suspect]
     Indication: MENINGITIS TUBERCULOUS
     Route: 048
     Dates: start: 20081225, end: 20090115
  2. ISONIAZID [Suspect]
     Indication: MENINGITIS TUBERCULOUS
     Route: 048
     Dates: start: 20081225, end: 20090115
  3. PYRAZINAMIDE [Concomitant]
     Indication: MENINGITIS TUBERCULOUS
     Route: 048
     Dates: start: 20081227, end: 20090115
  4. ETHAMBUTOL HCL [Concomitant]
     Indication: MENINGITIS TUBERCULOUS
     Route: 048
     Dates: start: 20081227, end: 20090115
  5. CLARITHROMYCIN [Concomitant]
     Route: 048
     Dates: start: 20081226, end: 20090115
  6. MUCOSTA [Concomitant]
     Route: 048
     Dates: start: 20081225
  7. GASTER D [Concomitant]
     Route: 048
     Dates: start: 20090101
  8. VITAMEDIN                          /00274301/ [Concomitant]
     Route: 048
     Dates: start: 20081225, end: 20090115
  9. VOLTAREN [Concomitant]
     Route: 054
     Dates: start: 20081225
  10. VOLTAREN [Concomitant]
     Route: 054
     Dates: start: 20081225

REACTIONS (5)
  - HEADACHE [None]
  - LIVER DISORDER [None]
  - LYMPHADENOPATHY [None]
  - PYREXIA [None]
  - WHITE BLOOD CELL COUNT DECREASED [None]
